FAERS Safety Report 4713598-0 (Version None)
Quarter: 2005Q3

REPORT INFORMATION
  Report Type: 
  Country: None (occurrence: None)
  Receive Date: 20050713
  Receipt Date: 20050707
  Transmission Date: 20060218
  Serious: Yes (Other)
  Sender: FDA-Public Use
  Company Number: PHBS2005JP09900

PATIENT
  Age: 74 Year
  Sex: Male

DRUGS (3)
  1. DIOVAN [Suspect]
     Indication: HYPERTENSION
     Dosage: 80 MG/DAY
     Route: 048
  2. ITOROL [Concomitant]
  3. NORVASC [Concomitant]

REACTIONS (3)
  - CRACKLES LUNG [None]
  - PRURITUS [None]
  - PULMONARY FIBROSIS [None]
